FAERS Safety Report 16164166 (Version 4)
Quarter: 2019Q4

REPORT INFORMATION
  Report Type: Report from Study
  Country: IE (occurrence: IE)
  Receive Date: 20190405
  Receipt Date: 20191004
  Transmission Date: 20200122
  Serious: Yes (Death, Other)
  Sender: FDA-Public Use
  Company Number: IE-JNJFOC-20190401284

PATIENT
  Age: 73 Year
  Sex: Male

DRUGS (7)
  1. TRITACE [Concomitant]
     Active Substance: RAMIPRIL
     Route: 050
  2. CRESTOR [Concomitant]
     Active Substance: ROSUVASTATIN CALCIUM
     Route: 050
  3. ADALAT [Concomitant]
     Active Substance: NIFEDIPINE
     Route: 050
  4. COMBODART [Concomitant]
     Active Substance: DUTASTERIDE\TAMSULOSIN
     Route: 050
  5. IBRUTINIB [Suspect]
     Active Substance: IBRUTINIB
     Indication: CHRONIC LYMPHOCYTIC LEUKAEMIA
     Route: 048
     Dates: start: 20161118
  6. ALLOPURINOL. [Concomitant]
     Active Substance: ALLOPURINOL
     Route: 050
  7. DESUNIN [Concomitant]
     Active Substance: CHOLECALCIFEROL
     Route: 050

REACTIONS (5)
  - Disease progression [Fatal]
  - Drug ineffective [Unknown]
  - Off label use [Unknown]
  - Arthritis [Unknown]
  - Incorrect dose administered [Unknown]

NARRATIVE: CASE EVENT DATE: 20161118
